FAERS Safety Report 7401010-2 (Version None)
Quarter: 2011Q2

REPORT INFORMATION
  Report Type: 
  Country: None (occurrence: None)
  Receive Date: 20110407
  Receipt Date: 20110331
  Transmission Date: 20111010
  Serious: Yes (Death, Other)
  Sender: FDA-Public Use
  Company Number: VE-GENZYME-CLOF-1001543

PATIENT
  Sex: Male

DRUGS (6)
  1. CYCLOPHOSPHAMIDE [Suspect]
     Dosage: UNK
     Route: 065
     Dates: start: 20110228, end: 20110304
  2. ETOPOSIDE [Suspect]
     Indication: ACUTE LYMPHOCYTIC LEUKAEMIA
     Dosage: UNK
     Route: 065
     Dates: start: 20110117, end: 20110121
  3. ETOPOSIDE [Suspect]
     Dosage: UNK
     Route: 065
     Dates: start: 20110228, end: 20110304
  4. CLOLAR [Suspect]
     Dosage: UNK
     Route: 065
     Dates: start: 20110228, end: 20110304
  5. CLOLAR [Suspect]
     Indication: ACUTE LYMPHOCYTIC LEUKAEMIA
     Dosage: UNK
     Route: 042
     Dates: start: 20110117, end: 20110121
  6. CYCLOPHOSPHAMIDE [Suspect]
     Indication: ACUTE LYMPHOCYTIC LEUKAEMIA
     Dosage: UNK
     Route: 065
     Dates: start: 20110117, end: 20110121

REACTIONS (3)
  - MULTI-ORGAN FAILURE [None]
  - NEUROLOGICAL DECOMPENSATION [None]
  - UROSEPSIS [None]
